FAERS Safety Report 23402048 (Version 1)
Quarter: 2024Q1

REPORT INFORMATION
  Report Type: Spontaneous
  Country: IT (occurrence: None)
  Receive Date: 20240115
  Receipt Date: 20240115
  Transmission Date: 20240409
  Serious: Yes (Hospitalization, Other)
  Sender: FDA-Public Use
  Company Number: 2024A007711

PATIENT
  Age: 82 Year
  Sex: Female

DRUGS (12)
  1. EVUSHELD [Suspect]
     Active Substance: CILGAVIMAB\TIXAGEVIMAB
     Indication: COVID-19 prophylaxis
     Dosage: 300.0MG ONCE/SINGLE ADMINISTRATION
     Route: 030
     Dates: start: 20220714, end: 20220714
  2. AMIODARONE [Concomitant]
     Active Substance: AMIODARONE
     Indication: Supraventricular tachycardia
     Dosage: DOSAGGIO: 200 UNITA DI MISURA: MILLIGRAMMI VIA SOMMINISTRAZIONE: ORALE
  3. CYANOCOBALAMIN\FOLIC ACID\PYRIDOXINE HYDROCHLORIDE [Concomitant]
     Active Substance: CYANOCOBALAMIN\FOLIC ACID\PYRIDOXINE HYDROCHLORIDE
     Indication: Folate deficiency
     Dosage: DOSAGGIO: 5 UNITA DI MISURA: MILLIGRAMMI VIA SOMMINISTRAZIONE: ORALE
  4. PRADAXA [Concomitant]
     Active Substance: DABIGATRAN ETEXILATE MESYLATE
     Indication: Thrombosis prophylaxis
     Dosage: DOSAGGIO: 220 UNITA DI MISURA: MILLIGRAMMI VIA SOMMINISTRAZIONE: ORALE
  5. LAMIVUDINE [Concomitant]
     Active Substance: LAMIVUDINE
     Indication: Hepatitis B
     Dosage: DOSAGGIO: 100 UNITA DI MISURA: MILLIGRAMMI VIA SOMMINISTRAZIONE: ORALE
  6. CHOLECALCIFEROL [Concomitant]
     Active Substance: CHOLECALCIFEROL
     Indication: Vitamin D deficiency
     Dosage: DOSAGGIO: 10000 UNITA DI MISURA: UNITA INTERNAZIONALI, IN MIGLIAIA VIA SOMMINISTRAZIONE: ORALE
  7. TIROSINT [Concomitant]
     Active Substance: LEVOTHYROXINE SODIUM
     Indication: Hypothyroidism
     Dosage: DOSAGGIO: 50 UNITA DI MISURA: MICROGRAMMI VIA SOMMINISTRAZIONE: ORALE
  8. CYANOCOBALAMIN\PYRIDOXINE\THIAMINE [Concomitant]
     Active Substance: CYANOCOBALAMIN\PYRIDOXINE\THIAMINE
     Indication: Vitamin B12 deficiency
     Dosage: DOSAGGIO: 1 CPR UNITA DI MISURA: UNITA POSOLOGICA VIA SOMMINISTRAZIONE: ORALE
  9. TIROSINT [Concomitant]
     Active Substance: LEVOTHYROXINE SODIUM
     Indication: Hypothyroidism
     Dosage: DOSAGGIO: 75 UNITA DI MISURA: MICROGRAMMI VIA SOMMINISTRAZIONE: ORALE
  10. TIMOLOL MALEATE [Concomitant]
     Active Substance: TIMOLOL MALEATE
     Indication: Glaucoma
     Dosage: DOSAGGIO: 2 UNITA DI MISURA: GOCCE VIA SOMMINISTRAZIONE: OFTALMICA
  11. BISOPROLOL FUMARATE [Concomitant]
     Active Substance: BISOPROLOL FUMARATE
     Indication: Hypertension
     Dosage: DOSAGGIO: 1.25 UNITA DI MISURA: MILLIGRAMMI VIA SOMMINISTRAZIONE: ORALE
  12. LORAZEPAM [Concomitant]
     Active Substance: LORAZEPAM
     Indication: Insomnia
     Dosage: DOSAGGIO: 5 UNITA DI MISURA: GOCCE VIA SOMMINISTRAZIONE: ORALE

REACTIONS (3)
  - COVID-19 [Recovered/Resolved]
  - COVID-19 [Recovered/Resolved]
  - Drug ineffective [Recovered/Resolved]

NARRATIVE: CASE EVENT DATE: 20221020
